FAERS Safety Report 24734775 (Version 1)
Quarter: 2024Q4

REPORT INFORMATION
  Report Type: Spontaneous
  Country: PT (occurrence: PT)
  Receive Date: 20241215
  Receipt Date: 20241215
  Transmission Date: 20250115
  Serious: Yes (Other)
  Sender: ARGENX BVBA
  Company Number: PT-ARGENX-2024-ARGX-PT011498

PATIENT

DRUGS (1)
  1. EFGARTIGIMOD ALFA [Suspect]
     Active Substance: EFGARTIGIMOD ALFA
     Indication: Myasthenia gravis
     Dosage: UNK, 1/WEEK
     Route: 042

REACTIONS (1)
  - Hypertensive crisis [Unknown]
